FAERS Safety Report 19139748 (Version 2)
Quarter: 2021Q2

REPORT INFORMATION
  Report Type: Report from Study
  Country: GB (occurrence: GB)
  Receive Date: 20210415
  Receipt Date: 20210423
  Transmission Date: 20210717
  Serious: Yes (Other)
  Sender: FDA-Public Use
  Company Number: GB-PFIZER INC-2021401848

PATIENT
  Weight: 25.4 kg

DRUGS (24)
  1. MITOXANTRONE HCL [Suspect]
     Active Substance: MITOXANTRONE HYDROCHLORIDE
     Indication: ACUTE MYELOID LEUKAEMIA
     Dosage: 12 MG/M2, 1X/DAY
     Route: 042
     Dates: start: 20210316, end: 20210319
  2. COTRIMOXAZOLE [Concomitant]
     Active Substance: SULFAMETHOXAZOLE\TRIMETHOPRIM
     Indication: PROPHYLAXIS
     Dosage: 480 MG (OTHER)
     Dates: start: 20210326
  3. SANDO K [POTASSIUM CHLORIDE] [Concomitant]
     Active Substance: POTASSIUM
     Indication: HYPOKALAEMIA
     Dosage: 1 DF, 2X/DAY
     Dates: start: 20210408, end: 20210409
  4. GENTAMICIN. [Concomitant]
     Active Substance: GENTAMICIN
     Indication: SEPSIS
     Dosage: 190 MG, 1X/DAY
     Dates: start: 20210327, end: 20210330
  5. TAZOCIN [Concomitant]
     Active Substance: PIPERACILLIN SODIUM\TAZOBACTAM SODIUM
     Indication: SEPSIS
     Dosage: 2.4 G, 3X/DAY
     Dates: start: 20210331, end: 20210407
  6. LENOGRASTIM [Concomitant]
     Active Substance: LENOGRASTIM
     Indication: IMMUNOCHEMOTHERAPY
     Dosage: UNK UNK, 1X/DAY (16.8 OTHER (MILLION.MTS))
  7. MEROPENEM. [Concomitant]
     Active Substance: MEROPENEM
     Dosage: 540 MG, 1X/DAY
     Dates: start: 20210407
  8. AMILORIDE [Concomitant]
     Active Substance: AMILORIDE
     Indication: HYPOKALAEMIA
     Dosage: 2.5 MG, 2X/DAY
     Dates: start: 20210408
  9. AMBISONE [Concomitant]
     Active Substance: AMPHOTERICIN B
     Dosage: 80 MG, 1X/DAY
     Dates: start: 20210329
  10. GEMTUZUMAB OZOGAMICIN [Suspect]
     Active Substance: GEMTUZUMAB OZOGAMICIN
     Indication: ACUTE MYELOID LEUKAEMIA
     Dosage: 3 MG (OTHER)
     Route: 042
     Dates: start: 20210319, end: 20210325
  11. AMBISONE [Concomitant]
     Active Substance: AMPHOTERICIN B
     Indication: BLOOD BETA-D-GLUCAN POSITIVE
     Dosage: 50 MG (OTHER) 3X WEEKLY
     Dates: start: 20210310, end: 20210328
  12. ONDANSETRON [Concomitant]
     Active Substance: ONDANSETRON
     Indication: ANTIEMETIC SUPPORTIVE CARE
     Dosage: 5 MG, 3X/DAY
     Dates: start: 20210316, end: 20210326
  13. CYCLIZINE [Concomitant]
     Active Substance: CYCLIZINE
     Indication: ANTIEMETIC SUPPORTIVE CARE
     Dosage: 25 MG, 2X/DAY
     Dates: start: 20210316, end: 20210330
  14. OINTMENT NO.1 [Concomitant]
     Indication: DRY SKIN
     Dosage: 50/50 OINTMENT
  15. OMEPRAZOLE. [Concomitant]
     Active Substance: OMEPRAZOLE
     Indication: GASTROINTESTINAL HAEMORRHAGE
     Dosage: 20 MG, 1X/DAY
     Dates: start: 20210322
  16. LEVOMEPROMAZINE [Concomitant]
     Active Substance: LEVOMEPROMAZINE
     Indication: ANTIEMETIC SUPPORTIVE CARE
     Dosage: 0.5 MG, AS NEEDED (OTHER)
     Dates: start: 20210318, end: 20210406
  17. HEPSAL [Concomitant]
     Active Substance: HEPARIN SODIUM
     Indication: CATHETER MANAGEMENT
     Dosage: 1 ML, AS NEEDED (OTHER)
     Dates: start: 20210324
  18. TEICOPLANIN [Concomitant]
     Active Substance: TEICOPLANIN
     Indication: SEPSIS
     Dosage: 270 MG, 1X/DAY
     Dates: start: 20210406
  19. MEROPENEM. [Concomitant]
     Active Substance: MEROPENEM
     Indication: SEPSIS
     Dosage: 540 MG, 3X/DAY
     Dates: start: 20210310, end: 20210327
  20. DERMAL [Concomitant]
     Indication: DRY SKIN
     Dosage: UNK, 2X/DAY
  21. METRONIDAZOLE. [Concomitant]
     Active Substance: METRONIDAZOLE
     Indication: GASTROINTESTINAL INFECTION
     Dosage: 200 MG, 3X/DAY
     Dates: start: 20210327, end: 20210331
  22. PARACETAMOL [Concomitant]
     Active Substance: ACETAMINOPHEN
     Indication: PYREXIA
     Dosage: 375 MG AS NEEDED (OTHER)
     Dates: start: 20210316
  23. CIPROFLOXACIN. [Concomitant]
     Active Substance: CIPROFLOXACIN
     Indication: GASTROINTESTINAL INFECTION
     Dosage: 250 MG, 3X/DAY
  24. ONDANSETRON [Concomitant]
     Active Substance: ONDANSETRON
     Dosage: 5 MG, AS NEEDED (OTHER)
     Dates: start: 20210407, end: 20210409

REACTIONS (4)
  - Hypokalaemia [Not Recovered/Not Resolved]
  - Febrile neutropenia [Not Recovered/Not Resolved]
  - Gastrointestinal haemorrhage [Not Recovered/Not Resolved]
  - Vomiting [Not Recovered/Not Resolved]
